FAERS Safety Report 8181907-9 (Version None)
Quarter: 2012Q1

REPORT INFORMATION
  Report Type: 
  Country: None (occurrence: None)
  Receive Date: 20120302
  Receipt Date: 20120301
  Transmission Date: 20120608
  Serious: Yes (Hospitalization, Other)
  Sender: FDA-Public Use
  Company Number: FR-ROCHE-800734

PATIENT
  Sex: Male
  Weight: 79 kg

DRUGS (11)
  1. LEVOLEUCOVORIN CALCIUM [Concomitant]
     Indication: COLORECTAL CANCER
     Route: 042
     Dates: start: 20110502, end: 20110719
  2. FLUOROURACIL [Concomitant]
     Indication: COLORECTAL CANCER
     Route: 042
     Dates: start: 20110502, end: 20110719
  3. IRINOTECAN HCL [Concomitant]
     Indication: COLORECTAL CANCER
     Route: 042
     Dates: start: 20110502, end: 20110719
  4. ZOFRAN [Concomitant]
     Indication: NAUSEA
     Dosage: FREQ:  ONE OF EACH COURSE.
     Route: 042
     Dates: start: 20110502, end: 20110719
  5. BISOPROLOL FUMARATE [Concomitant]
     Indication: ARRHYTHMIA
     Dosage: FREQ:  DAILY.
     Route: 048
  6. FLUOROURACIL [Concomitant]
     Route: 042
     Dates: start: 20110502, end: 20110719
  7. SOLU-MEDROL [Concomitant]
     Indication: NAUSEA
     Dosage: FREQ:  DAY 1 OF EACH CYCLE OF CHEMOTHERAPY.
     Route: 042
     Dates: start: 20110502, end: 20110719
  8. INNOHEP [Concomitant]
     Indication: ARRHYTHMIA
     Route: 058
  9. CORDARONE [Concomitant]
     Indication: ARRHYTHMIA
     Route: 048
  10. AVASTIN [Suspect]
     Indication: COLORECTAL CANCER
     Route: 042
     Dates: start: 20110502, end: 20110719
  11. PREDNISONE TAB [Concomitant]
     Indication: DERMATOMYOSITIS
     Dosage: FREQ:  DAILY.
     Route: 048

REACTIONS (4)
  - ARRHYTHMIA [None]
  - CARDIAC FAILURE [None]
  - ATRIAL FIBRILLATION [None]
  - ATRIAL FLUTTER [None]
